FAERS Safety Report 8227121-X (Version None)
Quarter: 2012Q1

REPORT INFORMATION
  Report Type: 
  Country: None (occurrence: None)
  Receive Date: 20120322
  Receipt Date: 20120314
  Transmission Date: 20120608
  Serious: Yes (Other)
  Sender: FDA-Public Use
  Company Number: US-BAYER-2011-088306

PATIENT
  Age: 23 Year
  Sex: Female
  Weight: 57 kg

DRUGS (7)
  1. DROSPIRENONE AND ETHINYL ESTRADIOL [Suspect]
     Indication: ACNE
     Dosage: UNK
     Dates: start: 20070101
  2. YAZ [Suspect]
     Indication: ACNE
     Dosage: UNK
     Dates: start: 20070101
  3. POTASSIUM CHLORIDE [Concomitant]
     Dosage: UNK
     Route: 048
     Dates: start: 20090731
  4. NORCO [Concomitant]
     Indication: PAIN
     Dosage: 10 MG, UNK
     Route: 048
     Dates: start: 20090731
  5. ZOFRAN [Concomitant]
     Dosage: UNK UNK, PRN (4-8MG AS NEEDED)
     Route: 042
     Dates: start: 20090731
  6. PHENERGAN [Concomitant]
     Indication: NAUSEA
     Dosage: 25 MG, PRN (EVERY 6 HOURS AS NEEDED)
     Route: 048
     Dates: start: 20090731
  7. MORPHINE SULFATE [Concomitant]
     Dosage: UNK UNK, PRN (4-10MG AS NEEDED)
     Route: 042
     Dates: start: 20090731

REACTIONS (4)
  - CHOLELITHIASIS [None]
  - FEAR OF DISEASE [None]
  - PAIN [None]
  - CHOLECYSTITIS CHRONIC [None]
